FAERS Safety Report 4412881-6 (Version None)
Quarter: 2004Q3

REPORT INFORMATION
  Report Type: 
  Country: None (occurrence: None)
  Receive Date: 20040730
  Receipt Date: 20040730
  Transmission Date: 20050211
  Serious: Yes (Hospitalization)
  Sender: FDA-Public Use
  Company Number: None

PATIENT
  Sex: Female
  Weight: 82.5547 kg

DRUGS (6)
  1. PREDNISONE 60 MG [Suspect]
     Indication: TEMPORAL ARTERITIS
     Dosage: 60 MG DAILY, ORAL
     Route: 048
     Dates: start: 20040307, end: 20040707
  2. NORVASC [Concomitant]
  3. ACTOS [Concomitant]
  4. COZAAR [Concomitant]
  5. ATENOLOL [Concomitant]
  6. AMBIEN [Concomitant]

REACTIONS (1)
  - HYPERGLYCAEMIA [None]
